FAERS Safety Report 14313530 (Version 1)
Quarter: 2017Q4

REPORT INFORMATION
  Report Type: Other
  Country: US (occurrence: US)
  Receive Date: 20171221
  Receipt Date: 20171221
  Transmission Date: 20180321
  Serious: Yes (Other)
  Sender: FDA-Public Use
  Company Number: US-MARY KAY INC.-2037563

PATIENT
  Age: 21 Year
  Sex: Female

DRUGS (3)
  1. MARY KAY TIMEWISE DAY SOLUTION SPF 35 [Suspect]
     Active Substance: AVOBENZONE\HOMOSALATE\OCTISALATE\OCTOCRYLENE\OXYBENZONE
     Route: 061
     Dates: start: 20171211, end: 20171211
  2. MARY KAY FOUNDATION PRIMER [Suspect]
     Active Substance: AVOBENZONE\HOMOSALATE\OCTISALATE\OCTOCRYLENE
     Indication: PROPHYLAXIS AGAINST SOLAR RADIATION
     Route: 061
     Dates: start: 20171211, end: 20171211
  3. MARY KAY CC CREAM SUNSCREEN BROAD SPECTRUM SPF 15 VERY LIGHT [Suspect]
     Active Substance: HOMOSALATE\OCTINOXATE\OXYBENZONE
     Route: 061
     Dates: start: 20171211, end: 20171211

REACTIONS (3)
  - Swelling face [None]
  - Hypersensitivity [Recovering/Resolving]
  - Dyspnoea [None]

NARRATIVE: CASE EVENT DATE: 20171211
